FAERS Safety Report 9975117 (Version 1)
Quarter: 2014Q1

REPORT INFORMATION
  Report Type: Report from Study
  Country: US (occurrence: US)
  Receive Date: 20140306
  Receipt Date: 20140306
  Transmission Date: 20141002
  Serious: No
  Sender: FDA-Public Use
  Company Number: US-ABBVIE-13P-163-1159923-00

PATIENT
  Age: 44 Year
  Sex: Male

DRUGS (2)
  1. HUMIRA [Suspect]
     Indication: PSORIASIS
     Dates: start: 201308
  2. AMLODIPINE [Concomitant]
     Indication: HYPERTENSION
     Dosage: 20 MG DAILY
     Route: 048

REACTIONS (2)
  - Device malfunction [Not Recovered/Not Resolved]
  - Dry eye [Not Recovered/Not Resolved]
